FAERS Safety Report 6939131-0 (Version None)
Quarter: 2010Q3

REPORT INFORMATION
  Report Type: 
  Country: None (occurrence: None)
  Receive Date: 20100824
  Receipt Date: 20100816
  Transmission Date: 20110219
  Serious: Yes (Other)
  Sender: FDA-Public Use
  Company Number: US-PFIZER INC-2010103144

PATIENT
  Sex: Male

DRUGS (2)
  1. CHANTIX [Suspect]
     Dosage: 0.5 MG, 2X/DAY
  2. CHANTIX [Suspect]
     Dosage: 1 MG, 2X/DAY

REACTIONS (2)
  - HOSTILITY [None]
  - RASH PUSTULAR [None]
